FAERS Safety Report 8430669-6 (Version None)
Quarter: 2012Q2

REPORT INFORMATION
  Report Type: 
  Country: None (occurrence: None)
  Receive Date: 20120323
  Receipt Date: 20110720
  Transmission Date: 20120825
  Serious: Yes (Hospitalization)
  Sender: FDA-Public Use
  Company Number: 163-21880-11060922

PATIENT
  Age: 58 Year
  Sex: Female

DRUGS (2)
  1. REVLIMID [Suspect]
     Indication: MULTIPLE MYELOMA
     Dosage: 10 MG, DAILY FOR 14 DAYS, THEN OFF 7, PO
     Route: 048
     Dates: start: 20110501
  2. REVLIMID [Suspect]
     Indication: MULTIPLE MYELOMA
     Dosage: 10 MG, DAILY FOR 14 DAYS, THEN OFF 7, PO
     Dates: start: 20101004, end: 20110501

REACTIONS (1)
  - PNEUMONIA [None]
